FAERS Safety Report 6663633-8 (Version None)
Quarter: 2010Q2

REPORT INFORMATION
  Report Type: 
  Country: None (occurrence: None)
  Receive Date: 20100401
  Receipt Date: 20100323
  Transmission Date: 20101027
  Serious: Yes (Death, Hospitalization)
  Sender: FDA-Public Use
  Company Number: JP-ABBOTT-10P-087-0630079-00

PATIENT
  Age: 5 Year
  Sex: Male

DRUGS (3)
  1. CLARITH [Suspect]
     Indication: MYCOPLASMA INFECTION
     Route: 048
     Dates: start: 20090612, end: 20090612
  2. LOXOPROFEN SODIUM [Suspect]
     Indication: UPPER RESPIRATORY TRACT INFLAMMATION
  3. LOXOPROFEN SODIUM [Concomitant]
     Indication: DRUG USE FOR UNKNOWN INDICATION

REACTIONS (2)
  - BRONCHIOLITIS [None]
  - STEVENS-JOHNSON SYNDROME [None]
